FAERS Safety Report 8792157 (Version 1)
Quarter: 2012Q4

REPORT INFORMATION
  Report Type: 
  Country: US (occurrence: US)
  Receive Date: 20120918
  Receipt Date: 20120918
  Transmission Date: 20130627
  Serious: Yes (Hospitalization, Other)
  Sender: FDA-Public Use
  Company Number: US-ROCHE-1120320

PATIENT
  Age: 68 Year
  Sex: Male

DRUGS (5)
  1. KLONOPIN [Suspect]
     Indication: PANIC DISORDER
  2. MORPHINE [Concomitant]
     Indication: PAIN
  3. RESTORIL [Concomitant]
  4. AMBIEN [Concomitant]
  5. ATIVAN [Concomitant]
     Route: 065

REACTIONS (6)
  - Neoplasm malignant [Recovering/Resolving]
  - Device related infection [Recovering/Resolving]
  - Spinal laminectomy [Unknown]
  - Neuropathy peripheral [Unknown]
  - Chest pain [Unknown]
  - Insomnia [Unknown]
